FAERS Safety Report 6278249-5 (Version None)
Quarter: 2009Q3

REPORT INFORMATION
  Report Type: 
  Country: None (occurrence: None)
  Receive Date: 20090720
  Receipt Date: 20090713
  Transmission Date: 20100115
  Serious: Yes (Hospitalization)
  Sender: FDA-Public Use
  Company Number: 325166

PATIENT
  Age: 65 Year
  Sex: Female

DRUGS (1)
  1. METHOTREXATE [Suspect]
     Indication: RHEUMATOID ARTHRITIS

REACTIONS (9)
  - ABDOMINAL DISCOMFORT [None]
  - HYPERGAMMAGLOBULINAEMIA [None]
  - HYPOALBUMINAEMIA [None]
  - NIGHT SWEATS [None]
  - PANCYTOPENIA [None]
  - PYREXIA [None]
  - SPLEEN PALPABLE [None]
  - VISCERAL LEISHMANIASIS [None]
  - WEIGHT DECREASED [None]
